FAERS Safety Report 6954986-1 (Version None)
Quarter: 2010Q3

REPORT INFORMATION
  Report Type: 
  Country: None (occurrence: None)
  Receive Date: 20100825
  Receipt Date: 20100804
  Transmission Date: 20110219
  Serious: Yes (Hospitalization, Other)
  Sender: FDA-Public Use
  Company Number: 2010080036

PATIENT
  Age: 40 Year
  Sex: Female

DRUGS (2)
  1. CARISOPRODOL [Suspect]
     Dosage: ORAL
     Route: 048
  2. OXYCODONE/ACETAMINOPHEN (OXYCODONE, ACETAMINOPHEN) [Concomitant]

REACTIONS (3)
  - HYPOTENSION [None]
  - RHABDOMYOLYSIS [None]
  - SEROTONIN SYNDROME [None]
